FAERS Safety Report 17525467 (Version 1)
Quarter: 2020Q1

REPORT INFORMATION
  Report Type: Report from Study
  Country: CA (occurrence: CA)
  Receive Date: 20200311
  Receipt Date: 20200311
  Transmission Date: 20200409
  Serious: Yes (Other)
  Sender: FDA-Public Use
  Company Number: PHHY2017CA030046

PATIENT
  Age: 27 Year
  Sex: Female

DRUGS (1)
  1. GILENYA [Suspect]
     Active Substance: FINGOLIMOD HYDROCHLORIDE
     Indication: RELAPSING-REMITTING MULTIPLE SCLEROSIS
     Dosage: 0.5 MG, QD
     Route: 048
     Dates: start: 20170221, end: 20200208

REACTIONS (21)
  - Headache [Recovered/Resolved]
  - Jaundice [Unknown]
  - Nausea [Unknown]
  - Heart rate decreased [Unknown]
  - Optic neuritis [Unknown]
  - Visual impairment [Recovering/Resolving]
  - Chest pain [Recovered/Resolved]
  - Hypotension [Unknown]
  - Aspartate aminotransferase increased [Not Recovered/Not Resolved]
  - Hepatitis [Unknown]
  - Vaginal infection [Unknown]
  - Dyspnoea [Unknown]
  - Urinary tract infection [Unknown]
  - Hot flush [Unknown]
  - Decreased appetite [Unknown]
  - Hyperhidrosis [Unknown]
  - Cough [Unknown]
  - Bundle branch block right [Unknown]
  - Hypoaesthesia [Unknown]
  - Urine odour abnormal [Unknown]
  - Alanine aminotransferase increased [Unknown]

NARRATIVE: CASE EVENT DATE: 20170308
